FAERS Safety Report 18940863 (Version 1)
Quarter: 2021Q1

REPORT INFORMATION
  Report Type: Spontaneous
  Country: US (occurrence: US)
  Receive Date: 20210225
  Receipt Date: 20210225
  Transmission Date: 20210420
  Serious: Yes (Hospitalization, Other)
  Sender: FDA-Public Use
  Company Number: None

PATIENT
  Age: 69 Year
  Sex: Female

DRUGS (7)
  1. TRAMADOL. [Concomitant]
     Active Substance: TRAMADOL
  2. HUMIRA [Suspect]
     Active Substance: ADALIMUMAB
     Indication: RHEUMATOID ARTHRITIS
     Dosage: ?          OTHER FREQUENCY:EVERY WEEK;?
     Route: 058
     Dates: start: 20190221
  3. FOSFOMYCIN [Concomitant]
     Active Substance: FOSFOMYCIN
  4. PREDNISOLONE. [Concomitant]
     Active Substance: PREDNISOLONE
  5. CLOBETASOL [Concomitant]
     Active Substance: CLOBETASOL
  6. CYCLOPENTOL [Concomitant]
  7. HYDROCO/APAP [Concomitant]
     Active Substance: ACETAMINOPHEN\HYDROCODONE

REACTIONS (2)
  - Knee operation [None]
  - Therapy interrupted [None]

NARRATIVE: CASE EVENT DATE: 20210104
